FAERS Safety Report 20947851 (Version 1)
Quarter: 2022Q2

REPORT INFORMATION
  Report Type: Spontaneous
  Country: US (occurrence: US)
  Receive Date: 20220611
  Receipt Date: 20220611
  Transmission Date: 20220721
  Serious: No
  Sender: FDA-Public Use
  Company Number: US-TEVA-2022-US-2038139

PATIENT
  Age: 42 Year
  Sex: Female

DRUGS (2)
  1. LIDOCAINE\PRILOCAINE [Suspect]
     Active Substance: LIDOCAINE\PRILOCAINE
     Dosage: 2.5-2.5 %
     Dates: start: 2018, end: 20220510
  2. LIDOCAINE\PRILOCAINE [Suspect]
     Active Substance: LIDOCAINE\PRILOCAINE
     Dosage: 2.5-2.5 %
     Dates: start: 2018, end: 20220510

REACTIONS (10)
  - Mood swings [Unknown]
  - Memory impairment [Unknown]
  - Confusional state [Unknown]
  - Peripheral swelling [Unknown]
  - Adverse event [Unknown]
  - Drug ineffective [Unknown]
  - Headache [Unknown]
  - Gait disturbance [Unknown]
  - Pain [Not Recovered/Not Resolved]
  - Recalled product administered [Unknown]
